FAERS Safety Report 9799630 (Version 3)
Quarter: 2014Q1

REPORT INFORMATION
  Report Type: Spontaneous
  Country: IE (occurrence: IE)
  Receive Date: 20140106
  Receipt Date: 20140124
  Transmission Date: 20141002
  Serious: Yes (Hospitalization, Other)
  Sender: FDA-Public Use
  Company Number: IE-PFIZER INC-2013314684

PATIENT
  Age: 49 Year
  Sex: Male

DRUGS (6)
  1. CHAMPIX [Suspect]
     Indication: SMOKING CESSATION THERAPY
     Dosage: 0.5 MG, 1X/DAY
     Route: 048
     Dates: start: 20131006, end: 20131014
  2. ESCITALOPRAM [Concomitant]
     Indication: DEPRESSION
     Dosage: 10 MG, UNK
     Route: 048
  3. PREGABALIN [Concomitant]
     Indication: PAIN
     Dosage: 25 MG, UNK
     Route: 048
  4. AMITRIPTYLINE [Concomitant]
     Indication: PAIN
     Dosage: 75 MG, UNK
     Route: 048
  5. ESOMEPRAZOLE [Concomitant]
     Indication: GASTRITIS
     Dosage: 40 MG, UNK
     Route: 048
  6. CREON [Concomitant]
     Indication: PANCREATIC INSUFFICIENCY
     Dosage: 10000 UNITS
     Route: 048
     Dates: start: 201308

REACTIONS (3)
  - Pancreatitis acute [Recovered/Resolved]
  - Duodenitis [Recovered/Resolved]
  - Gastritis [Recovered/Resolved]
